FAERS Safety Report 5497247-2 (Version None)
Quarter: 2007Q4

REPORT INFORMATION
  Report Type: 
  Country: None (occurrence: None)
  Receive Date: 20071025
  Receipt Date: 20061016
  Transmission Date: 20080405
  Serious: No
  Sender: FDA-Public Use
  Company Number: A0620582A

PATIENT
  Sex: Female

DRUGS (3)
  1. ADVAIR DISKUS 100/50 [Suspect]
     Indication: ASTHMA
     Route: 055
     Dates: end: 20060601
  2. FLOVENT [Suspect]
     Indication: ASTHMA
     Route: 055
     Dates: start: 20060601, end: 20060901
  3. FORADIL [Suspect]
     Indication: ASTHMA
     Route: 055
     Dates: start: 20060601, end: 20060901

REACTIONS (2)
  - DRUG INEFFECTIVE [None]
  - PARAESTHESIA [None]
